FAERS Safety Report 5981659-4 (Version None)
Quarter: 2008Q4

REPORT INFORMATION
  Report Type: 
  Country: None (occurrence: None)
  Receive Date: 20081205
  Receipt Date: 20081126
  Transmission Date: 20090506
  Serious: Yes (Disabling)
  Sender: FDA-Public Use
  Company Number: GB-ELI_LILLY_AND_COMPANY-GB200811006144

PATIENT
  Age: 80 Year
  Sex: Female

DRUGS (6)
  1. CYMBALTA [Suspect]
     Indication: DEPRESSION
     Dosage: 20 MG, UNKNOWN
     Route: 048
     Dates: start: 20080801, end: 20081001
  2. CYMBALTA [Suspect]
     Dates: start: 20081001
  3. MS CONTIN [Concomitant]
     Indication: PAIN
     Dosage: 35 MG, DAILY (1/D)
     Route: 048
  4. NAPROXEN [Concomitant]
     Indication: PAIN
     Dosage: 250 MG, UNKNOWN
     Route: 065
  5. ORAMORPH SR [Concomitant]
     Indication: PAIN
     Dosage: UNK, AS NEEDED
     Route: 048
  6. PREGABALIN [Concomitant]
     Indication: NEURALGIA
     Dosage: 200 MG, UNKNOWN
     Route: 048
     Dates: start: 20050101

REACTIONS (3)
  - ATAXIA [None]
  - FALL [None]
  - GAIT DISTURBANCE [None]
